FAERS Safety Report 5858420-4 (Version None)
Quarter: 2008Q3

REPORT INFORMATION
  Report Type: 
  Country: None (occurrence: None)
  Receive Date: 20080822
  Receipt Date: 20080821
  Transmission Date: 20090109
  Serious: Yes (Life-Threatening, Hospitalization)
  Sender: FDA-Public Use
  Company Number: GXKR2008DE07794

PATIENT
  Sex: Male

DRUGS (2)
  1. OMEPRAZOLE [Suspect]
     Indication: NEPHRITIS
     Dosage: ORAL
     Route: 048
  2. DECORTIN - H (PRENISOLONE) [Suspect]
     Dosage: ORAL
     Route: 048

REACTIONS (1)
  - LISTERIA SEPSIS [None]
